FAERS Safety Report 8124112-4 (Version None)
Quarter: 2012Q1

REPORT INFORMATION
  Report Type: 
  Country: None (occurrence: None)
  Receive Date: 20120209
  Receipt Date: 20120202
  Transmission Date: 20120608
  Serious: Yes (Other)
  Sender: FDA-Public Use
  Company Number: FI-US-EMD SERONO, INC.-7111079

PATIENT
  Age: 56 Year
  Sex: Female

DRUGS (2)
  1. REBIF [Suspect]
     Indication: RELAPSING-REMITTING MULTIPLE SCLEROSIS
     Route: 058
     Dates: start: 20101227, end: 20110101
  2. REBIF [Suspect]
     Route: 058
     Dates: start: 20110101, end: 20110913

REACTIONS (1)
  - BONE MARROW FAILURE [None]
